FAERS Safety Report 8913087 (Version 1)
Quarter: 2012Q4

REPORT INFORMATION
  Report Type: 
  Country: JP (occurrence: JP)
  Receive Date: 20121119
  Receipt Date: 20121119
  Transmission Date: 20130627
  Serious: Yes (Death, Other)
  Sender: FDA-Public Use
  Company Number: JP-JNJFOC-20121105860

PATIENT

DRUGS (2)
  1. ITRIZOLE [Suspect]
     Indication: BRONCHOPULMONARY ASPERGILLOSIS
     Dosage: treatment begun on day 0 and was administered for 28 days
     Route: 048
  2. MICAFUNGIN [Suspect]
     Indication: BRONCHOPULMONARY ASPERGILLOSIS
     Dosage: diluted in 100 ml of sterile isotonic saline or 5% dextrose in water, infused over a 60 minutes
     Route: 041

REACTIONS (6)
  - Death [Fatal]
  - Eosinophilia [Recovered/Resolved]
  - Haemoptysis [Unknown]
  - Pneumonia [Unknown]
  - No therapeutic response [Unknown]
  - Hepatic function abnormal [Recovered/Resolved]
